FAERS Safety Report 22198686 (Version 1)
Quarter: 2023Q2

REPORT INFORMATION
  Report Type: Spontaneous
  Country: US (occurrence: None)
  Receive Date: 20230411
  Receipt Date: 20230411
  Transmission Date: 20230721
  Serious: Yes (Death)
  Sender: FDA-Public Use
  Company Number: None

PATIENT
  Age: 70 Year
  Sex: Female

DRUGS (2)
  1. CAPECITABINE [Suspect]
     Active Substance: CAPECITABINE
     Indication: Neoplasm malignant
     Dosage: FREQUENCY : 3 TIMES A WEEK;?
     Route: 048
     Dates: start: 20221025, end: 20230411
  2. EXEMESTANE [Suspect]
     Active Substance: EXEMESTANE
     Dosage: FREQUENCY : DAILY;?
     Route: 048
     Dates: start: 20230209, end: 20230411

REACTIONS (1)
  - Death [None]
